FAERS Safety Report 13629268 (Version 1)
Quarter: 2017Q2

REPORT INFORMATION
  Report Type: Spontaneous
  Country: US (occurrence: US)
  Receive Date: 20170531
  Receipt Date: 20170531
  Transmission Date: 20170830
  Serious: No
  Sender: FDA-Public Use
  Company Number: US-ASTELLAS-1132916

PATIENT
  Sex: Female

DRUGS (1)
  1. TARCEVA [Suspect]
     Active Substance: ERLOTINIB HYDROCHLORIDE
     Indication: PRODUCT USED FOR UNKNOWN INDICATION

REACTIONS (8)
  - Pruritus [Unknown]
  - Gingival disorder [Unknown]
  - Dry skin [Unknown]
  - Erythema [Unknown]
  - Acne [Unknown]
  - Rash [Unknown]
  - Neck mass [Unknown]
  - Oral discomfort [Unknown]
